FAERS Safety Report 16489106 (Version 1)
Quarter: 2019Q2

REPORT INFORMATION
  Report Type: Spontaneous
  Country: US (occurrence: US)
  Receive Date: 20190628
  Receipt Date: 20190628
  Transmission Date: 20190711
  Serious: No
  Sender: FDA-Public Use
  Company Number: US-ASTRAZENECA-2019SE86246

PATIENT
  Sex: Female

DRUGS (1)
  1. SYMBICORT [Suspect]
     Active Substance: BUDESONIDE\FORMOTEROL FUMARATE DIHYDRATE
     Indication: CHRONIC OBSTRUCTIVE PULMONARY DISEASE
     Dosage: 160/4.5 2 PUFFS BID FOR 10-12 YEARS
     Route: 055

REACTIONS (8)
  - Lung disorder [Unknown]
  - Device issue [Unknown]
  - Off label use [Unknown]
  - Wrong technique in product usage process [Unknown]
  - Fungal infection [Unknown]
  - Product dose omission [Unknown]
  - Headache [Unknown]
  - Product use issue [Unknown]
